FAERS Safety Report 9958070 (Version 2)
Quarter: 2014Q1

REPORT INFORMATION
  Report Type: Report from Study
  Country: US (occurrence: US)
  Receive Date: 20140304
  Receipt Date: 20140304
  Transmission Date: 20141002
  Serious: Yes (Other)
  Sender: FDA-Public Use
  Company Number: US-ABBVIE-13P-163-1073122-00

PATIENT
  Age: 44 Year
  Sex: Male

DRUGS (1)
  1. HUMIRA [Suspect]
     Indication: COLITIS ULCERATIVE
     Dates: start: 20130305

REACTIONS (4)
  - Drug ineffective [Unknown]
  - Pyrexia [Not Recovered/Not Resolved]
  - Chills [Recovered/Resolved]
  - Oropharyngeal pain [Recovered/Resolved]
